FAERS Safety Report 9753144 (Version 2)
Quarter: 2013Q4

REPORT INFORMATION
  Report Type: Spontaneous
  Country: US (occurrence: US)
  Receive Date: 20131213
  Receipt Date: 20131213
  Transmission Date: 20140711
  Serious: No
  Sender: FDA-Public Use
  Company Number: US-GILEAD-2010-0026391

PATIENT
  Sex: Female
  Weight: 54.2 kg

DRUGS (15)
  1. HCTZ [Concomitant]
  2. ENALAPRIL [Concomitant]
  3. AMLODIPINE BESYLATE [Concomitant]
  4. HYDROXYCHLOROQUINE [Concomitant]
  5. LORAZEPAM [Concomitant]
  6. CLONAZEPAM [Concomitant]
  7. PREDNISONE [Concomitant]
  8. PHOSPHATIDYL SERINE [Concomitant]
  9. NB3 [Concomitant]
  10. COQ-10 [Concomitant]
  11. FISH OIL [Concomitant]
  12. CALCIUM [Concomitant]
  13. KLONIPIN [Concomitant]
  14. MULTIVITAMIN [Concomitant]
  15. LETAIRIS [Suspect]
     Indication: PULMONARY ARTERIAL HYPERTENSION
     Route: 048
     Dates: start: 20100106

REACTIONS (1)
  - Blood pressure decreased [Unknown]
